FAERS Safety Report 8937570 (Version 1)
Quarter: 2012Q4

REPORT INFORMATION
  Report Type: Spontaneous
  Country: US (occurrence: None)
  Receive Date: 20121128
  Receipt Date: 20121128
  Transmission Date: 20130627
  Serious: Yes (Other)
  Sender: FDA-Public Use
  Company Number: None

PATIENT
  Age: 79 Year
  Sex: Male
  Weight: 63.5 kg

DRUGS (1)
  1. TRAMADOL [Suspect]
     Indication: PAIN
     Dosage: one tablet every 12 hours prn po
     Route: 048
     Dates: start: 20121107, end: 20121122

REACTIONS (6)
  - Incorrect dose administered [None]
  - Drug effect decreased [None]
  - Dysphonia [None]
  - Delirium [None]
  - Hyponatraemia [None]
  - Myocardial infarction [None]
